FAERS Safety Report 6645750-1 (Version None)
Quarter: 2010Q1

REPORT INFORMATION
  Report Type: 
  Country: None (occurrence: None)
  Receive Date: 20100318
  Receipt Date: 20100318
  Transmission Date: 20100710
  Serious: Yes (Life-Threatening)
  Sender: FDA-Public Use
  Company Number: None

PATIENT
  Age: 59 Year
  Sex: Female
  Weight: 78.4723 kg

DRUGS (12)
  1. BENZONATATE [Suspect]
     Indication: COUGH
     Dosage: 200 MG BID PO
     Route: 048
     Dates: start: 20100311, end: 20100317
  2. LEVOTHYROXINE SODIUM [Concomitant]
  3. CALCIUM [Concomitant]
  4. MULTI-VITAMIN [Concomitant]
  5. PAROXETINE HCL [Concomitant]
  6. ABILIFY [Concomitant]
  7. OXAPROZIN [Concomitant]
  8. DIVALPROEX SODIUM [Concomitant]
  9. RANITIDINE [Concomitant]
  10. TYLENOL-500 [Concomitant]
  11. PRAVASTATIN [Concomitant]
  12. ASPIRIN [Concomitant]

REACTIONS (6)
  - ABDOMINAL DISCOMFORT [None]
  - ACTIVITIES OF DAILY LIVING IMPAIRED [None]
  - AGGRESSION [None]
  - DIZZINESS [None]
  - FATIGUE [None]
  - SUICIDAL IDEATION [None]
